FAERS Safety Report 9128097 (Version 1)
Quarter: 2013Q1

REPORT INFORMATION
  Report Type: Spontaneous
  Country: FR (occurrence: FR)
  Receive Date: 20130228
  Receipt Date: 20130228
  Transmission Date: 20140127
  Serious: Yes (Hospitalization)
  Sender: FDA-Public Use
  Company Number: FR-PFIZER INC-2013067288

PATIENT
  Age: 54 Year
  Sex: Male

DRUGS (2)
  1. CELEBREX [Suspect]
     Indication: PSORIATIC ARTHROPATHY
     Dosage: 200 MG, DAILY
     Route: 048
     Dates: start: 20130109
  2. APRANAX [Concomitant]
     Dosage: UNK

REACTIONS (1)
  - Dermatitis psoriasiform [Recovered/Resolved]
